FAERS Safety Report 10101605 (Version 2)
Quarter: 2014Q2

REPORT INFORMATION
  Report Type: Report from Study
  Country: US (occurrence: US)
  Receive Date: 20140424
  Receipt Date: 20140519
  Transmission Date: 20141212
  Serious: Yes (Other)
  Sender: FDA-Public Use
  Company Number: US-JNJFOC-20140411711

PATIENT
  Sex: Female
  Weight: 69.4 kg

DRUGS (7)
  1. XARELTO [Suspect]
     Indication: CEREBROVASCULAR ACCIDENT PROPHYLAXIS
     Route: 048
     Dates: start: 20130802
  2. XARELTO [Suspect]
     Indication: ATRIAL FIBRILLATION
     Route: 048
     Dates: start: 20130802
  3. METOPROLOL [Suspect]
     Indication: PRODUCT USED FOR UNKNOWN INDICATION
     Route: 048
     Dates: start: 201308, end: 20140310
  4. ASPIRIN [Suspect]
     Indication: PRODUCT USED FOR UNKNOWN INDICATION
     Route: 048
     Dates: end: 201311
  5. LOVASTATIN [Concomitant]
     Indication: BLOOD CHOLESTEROL
     Route: 048
  6. MULTIVITAMINS [Concomitant]
     Route: 065
  7. COENZYME Q10 [Concomitant]
     Route: 065

REACTIONS (14)
  - Rectal haemorrhage [Recovered/Resolved]
  - Haemorrhoidal haemorrhage [Recovered/Resolved]
  - Vision blurred [Not Recovered/Not Resolved]
  - Urticaria [Unknown]
  - Decreased appetite [Unknown]
  - Constipation [Unknown]
  - Dry eye [Unknown]
  - Fatigue [Unknown]
  - Urine output decreased [Not Recovered/Not Resolved]
  - Pruritus [Not Recovered/Not Resolved]
  - Abdominal pain upper [Recovered/Resolved]
  - Weight increased [Not Recovered/Not Resolved]
  - General physical health deterioration [Recovered/Resolved]
  - Rash [Recovered/Resolved]
